FAERS Safety Report 14007671 (Version 1)
Quarter: 2017Q3

REPORT INFORMATION
  Report Type: Spontaneous
  Country: DE (occurrence: DE)
  Receive Date: 20170925
  Receipt Date: 20170925
  Transmission Date: 20171128
  Serious: Yes (Hospitalization, Other)
  Sender: FDA-Public Use
  Company Number: DE-ASTELLAS-2017US037726

PATIENT
  Age: 14 Month
  Sex: Female

DRUGS (2)
  1. ENALAPRIL [Suspect]
     Active Substance: ENALAPRIL
     Indication: HYPERTENSION
     Dosage: UNK, UNKNOWN FREQ.
     Route: 065
  2. TACROLIMUS. [Suspect]
     Active Substance: TACROLIMUS
     Indication: LIVER TRANSPLANT
     Dosage: UNK, UNKNOWN FREQ.
     Route: 065

REACTIONS (9)
  - Hyperuricaemia [Recovered/Resolved]
  - Nephrogenic diabetes insipidus [Unknown]
  - Feeding disorder [Unknown]
  - Acute kidney injury [Recovered/Resolved]
  - Nephrocalcinosis [Unknown]
  - Renal tubular acidosis [Unknown]
  - Metabolic acidosis [Recovered/Resolved]
  - Hyperchloraemia [Recovered/Resolved]
  - Hyperkalaemia [Recovered/Resolved]
